FAERS Safety Report 4380532-5 (Version None)
Quarter: 2004Q2

REPORT INFORMATION
  Report Type: 
  Country: None (occurrence: None)
  Receive Date: 20040614
  Receipt Date: 20040528
  Transmission Date: 20050107
  Serious: Yes (Hospitalization)
  Sender: FDA-Public Use
  Company Number: US-JNJFOC-20040506880

PATIENT
  Age: 78 Year
  Sex: Male

DRUGS (16)
  1. VIADUR [Suspect]
     Indication: PROSTATE CANCER
     Dosage: 120 UG, 1 IN 1 DAY, SUBCUTANEOUS
     Route: 058
     Dates: start: 20040505, end: 20040526
  2. METAMUCIL-2 [Concomitant]
  3. ZOCOR [Concomitant]
  4. COZAAR [Concomitant]
  5. IMDUR [Concomitant]
  6. POTASIUM (POTASSIUM) [Concomitant]
  7. LASIX [Concomitant]
  8. PAXIL [Concomitant]
  9. MULTIVITAMIN (MULTIVITAMINS) [Concomitant]
  10. PRILOSEC [Concomitant]
  11. LOPRESSOR [Concomitant]
  12. MILK OF MAGNESIUM (MAGNESIUM HYDROXIDE) [Concomitant]
  13. DUCOLAX (BISACODYL) [Concomitant]
  14. TYLENOL [Concomitant]
  15. NTG (GLYCERYL TRINITRATE) [Concomitant]
  16. WINE (ETHANOL) [Concomitant]

REACTIONS (5)
  - CARDIAC FAILURE [None]
  - IMPLANT EXPULSION [None]
  - IMPLANT SITE REACTION [None]
  - PULMONARY OEDEMA [None]
  - SKIN DISCOLOURATION [None]
